FAERS Safety Report 17060939 (Version 1)
Quarter: 2019Q4

REPORT INFORMATION
  Report Type: Spontaneous
  Country: GB (occurrence: GB)
  Receive Date: 20191121
  Receipt Date: 20191121
  Transmission Date: 20200122
  Serious: Yes (Hospitalization)
  Sender: FDA-Public Use
  Company Number: NVSC2019GB042322

PATIENT
  Sex: Male

DRUGS (1)
  1. ADOPORT [Suspect]
     Active Substance: TACROLIMUS
     Indication: PRODUCT USED FOR UNKNOWN INDICATION
     Dosage: 7 MG, BID (3MG AM/4 MG PM)
     Route: 065
     Dates: start: 20190408

REACTIONS (2)
  - Nephritis [Unknown]
  - Kidney infection [Unknown]
